FAERS Safety Report 10056739 (Version 3)
Quarter: 2014Q2

REPORT INFORMATION
  Report Type: Spontaneous
  Country: US (occurrence: US)
  Receive Date: 20140403
  Receipt Date: 20140515
  Transmission Date: 20141212
  Serious: Yes (Hospitalization)
  Sender: FDA-Public Use
  Company Number: US-GLAXOSMITHKLINE-A0733719A

PATIENT
  Age: 61 Year
  Sex: Female
  Weight: 96.4 kg

DRUGS (11)
  1. AVANDIA [Suspect]
     Indication: TYPE 2 DIABETES MELLITUS
     Route: 048
     Dates: start: 200204, end: 20040620
  2. VICODIN [Concomitant]
  3. ASPIRIN [Concomitant]
     Dosage: 81G PER DAY
  4. MICRONASE [Concomitant]
  5. INSULIN [Concomitant]
  6. TYLENOL [Concomitant]
  7. CLONIDINE [Concomitant]
     Dosage: .2MG THREE TIMES PER DAY
  8. GLYBURIDE [Concomitant]
     Dosage: 10MG TWICE PER DAY
  9. ATENOLOL [Concomitant]
     Dosage: 50MG PER DAY
  10. HCTZ [Concomitant]
  11. DAYPRO [Concomitant]

REACTIONS (7)
  - Acute myocardial infarction [Not Recovered/Not Resolved]
  - Myocardial infarction [Unknown]
  - Angina unstable [Unknown]
  - Transient ischaemic attack [Unknown]
  - Atrial fibrillation [Unknown]
  - Coronary artery disease [Unknown]
  - Cardiac failure congestive [Unknown]
